FAERS Safety Report 4970458-8 (Version None)
Quarter: 2006Q2

REPORT INFORMATION
  Report Type: 
  Country: None (occurrence: None)
  Receive Date: 20060412
  Receipt Date: 20060403
  Transmission Date: 20061013
  Serious: Yes (Hospitalization, Other)
  Sender: FDA-Public Use
  Company Number: DE-JNJFOC-20060302072

PATIENT
  Age: 41 Year
  Sex: Male
  Weight: 79 kg

DRUGS (3)
  1. REMICADE [Suspect]
     Route: 042
  2. REMICADE [Suspect]
     Route: 042
  3. EXCIPAL CREAM [Concomitant]
     Route: 065

REACTIONS (1)
  - TUBERCULOSIS [None]
